FAERS Safety Report 13064496 (Version 1)
Quarter: 2016Q4

REPORT INFORMATION
  Report Type: Spontaneous
  Country: US (occurrence: US)
  Receive Date: 20161223
  Receipt Date: 20161223
  Transmission Date: 20170207
  Serious: Yes (Life-Threatening, Hospitalization)
  Sender: FDA-Public Use
  Company Number: None

PATIENT
  Age: 45 Year
  Sex: Male
  Weight: 98.97 kg

DRUGS (1)
  1. CLOZAPINE. [Suspect]
     Active Substance: CLOZAPINE
     Indication: PSYCHOTIC DISORDER
     Route: 048

REACTIONS (12)
  - Hyperhidrosis [None]
  - Neck pain [None]
  - Atrial fibrillation [None]
  - Lung infection [None]
  - Dizziness [None]
  - Troponin increased [None]
  - Headache [None]
  - Tremor [None]
  - Joint stiffness [None]
  - Bacterial test positive [None]
  - Musculoskeletal stiffness [None]
  - Myalgia [None]

NARRATIVE: CASE EVENT DATE: 20161130
